FAERS Safety Report 8985739 (Version 1)
Quarter: 2012Q4

REPORT INFORMATION
  Report Type: 
  Country: JP (occurrence: JP)
  Receive Date: 20121226
  Receipt Date: 20121226
  Transmission Date: 20130627
  Serious: Yes (Other)
  Sender: FDA-Public Use
  Company Number: JP-B.I. PHARMACEUTICALS,INC./RIDGEFIELD-2012-BI-04175YA

PATIENT
  Age: 82 Year
  Sex: Male

DRUGS (3)
  1. HARNAL [Suspect]
     Route: 048
     Dates: start: 201212
  2. BETANIS (MIRABEGRON) TABLET [Suspect]
     Route: 048
     Dates: start: 201212
  3. ANTIHYPERTENSIVES [Concomitant]

REACTIONS (1)
  - Aphasia [Unknown]
